FAERS Safety Report 9163416 (Version 4)
Quarter: 2013Q4

REPORT INFORMATION
  Report Type: Report from Study
  Country: US (occurrence: US)
  Receive Date: 20130314
  Receipt Date: 20131030
  Transmission Date: 20140711
  Serious: Yes (Other)
  Sender: FDA-Public Use
  Company Number: US-ROCHE-1201641

PATIENT
  Age: 82 Year
  Sex: Female
  Weight: 72.64 kg

DRUGS (8)
  1. XELODA [Suspect]
     Indication: COLORECTAL CANCER METASTATIC
     Route: 048
     Dates: start: 201302
  2. XELODA [Suspect]
     Dosage: 1500 MG MORNING AND 1000 MG IN EVENING.
     Route: 048
     Dates: start: 201302
  3. XELODA [Suspect]
     Dosage: MORNING 3 TAB.
     Route: 048
     Dates: start: 20120107, end: 20120111
  4. XELODA [Suspect]
     Dosage: MORNING 3 TAB.
     Route: 048
     Dates: start: 20130102, end: 20130204
  5. XELODA [Suspect]
     Route: 048
     Dates: start: 20130402
  6. XELODA [Suspect]
     Route: 048
     Dates: start: 20130215
  7. AVASTIN [Suspect]
     Indication: COLORECTAL CANCER METASTATIC
     Route: 042
     Dates: start: 20120107
  8. DILANTIN [Suspect]
     Indication: CONVULSION
     Route: 048
     Dates: end: 20130528

REACTIONS (14)
  - Malignant neoplasm progression [Unknown]
  - Dizziness [Recovered/Resolved]
  - Headache [Recovered/Resolved]
  - Dizziness [Recovered/Resolved]
  - Drug ineffective [Unknown]
  - Gait disturbance [Not Recovered/Not Resolved]
  - Asthenia [Not Recovered/Not Resolved]
  - Tremor [Not Recovered/Not Resolved]
  - Flushing [Not Recovered/Not Resolved]
  - Disease progression [Unknown]
  - Hypoaesthesia [Not Recovered/Not Resolved]
  - Paraesthesia [Not Recovered/Not Resolved]
  - Anticonvulsant drug level increased [Not Recovered/Not Resolved]
  - Convulsion [Not Recovered/Not Resolved]
